FAERS Safety Report 7951620-9 (Version None)
Quarter: 2011Q4

REPORT INFORMATION
  Report Type: 
  Country: None (occurrence: None)
  Receive Date: 20111201
  Receipt Date: 20111122
  Transmission Date: 20120403
  Serious: Yes (Other)
  Sender: FDA-Public Use
  Company Number: US-BAYER-2011-112965

PATIENT
  Age: 31 Year
  Sex: Female

DRUGS (3)
  1. YAZ [Suspect]
     Dosage: UNK
     Dates: start: 20080501, end: 20081101
  2. YAZ [Suspect]
     Dosage: UNK
     Dates: start: 20100201, end: 20100801
  3. YAZ [Suspect]
     Dosage: UNK
     Dates: start: 20090101, end: 20090701

REACTIONS (2)
  - INJURY [None]
  - GALLBLADDER INJURY [None]
